FAERS Safety Report 20798915 (Version 1)
Quarter: 2022Q2

REPORT INFORMATION
  Report Type: Spontaneous
  Country: DE (occurrence: DE)
  Receive Date: 20220507
  Receipt Date: 20220507
  Transmission Date: 20220721
  Serious: Yes (Other)
  Sender: FDA-Public Use
  Company Number: DE-ROCHE-3080526

PATIENT
  Sex: Female

DRUGS (7)
  1. BENDAMUSTINE HYDROCHLORIDE [Suspect]
     Active Substance: BENDAMUSTINE HYDROCHLORIDE
     Indication: Diffuse large B-cell lymphoma
     Dosage: ( 3 CYCLES, SECOND LINE)
     Route: 042
     Dates: end: 201903
  2. PREDNISONE [Suspect]
     Active Substance: PREDNISONE
     Indication: Diffuse large B-cell lymphoma
     Dosage: (R-CHOP, 8 CYCLES, CYCLES 5 TO 8 75% DOSE, FIRST LINE)
     Route: 065
     Dates: start: 201701, end: 201705
  3. VINCRISTINE [Suspect]
     Active Substance: VINCRISTINE
     Indication: Diffuse large B-cell lymphoma
     Dosage: (R-CHOP, 8 CYCLES, CYCLES 5 TO 8 75% DOSE, FIRST LINE)
     Route: 065
     Dates: start: 201701, end: 201705
  4. DOXORUBICIN [Suspect]
     Active Substance: DOXORUBICIN
     Indication: Diffuse large B-cell lymphoma
     Dosage: (R-CHOP, 8 CYCLES, CYCLES 5 TO 8 75% DOSE, FIRST LINE)
     Route: 065
     Dates: start: 201701, end: 201705
  5. MABTHERA [Suspect]
     Active Substance: RITUXIMAB
     Indication: Diffuse large B-cell lymphoma
     Dosage: (R-CHOP, 8 CYCLES, CYCLES 5 TO 8 75% DOSE, FIRST LINE)
     Route: 065
     Dates: start: 201701, end: 201705
  6. GEMCITABINE HYDROCHLORIDE\OXALIPLATIN [Suspect]
     Active Substance: GEMCITABINE HYDROCHLORIDE\OXALIPLATIN
     Indication: Diffuse large B-cell lymphoma
     Dosage: (R-GEMCITABINE/OXALIPLATINE, 80% DOSE, 8 CYCLES, FURTHER LINES)
     Route: 065
     Dates: start: 201906, end: 201910
  7. CYCLOPHOSPHAMIDE [Suspect]
     Active Substance: CYCLOPHOSPHAMIDE
     Indication: Diffuse large B-cell lymphoma
     Dosage: (R-CHOP, 8 CYCLES, CYCLES 5 TO 8 75% DOSE, FIRST LINE)
     Route: 065
     Dates: start: 201701, end: 201705

REACTIONS (1)
  - Polyneuropathy [Unknown]
